FAERS Safety Report 18285667 (Version 1)
Quarter: 2020Q3

REPORT INFORMATION
  Report Type: Spontaneous
  Country: US (occurrence: US)
  Receive Date: 20200919
  Receipt Date: 20200919
  Transmission Date: 20201103
  Serious: No
  Sender: FDA-Public Use
  Company Number: US-009507513-2009USA004387

PATIENT
  Sex: Female

DRUGS (3)
  1. JADELLE [Suspect]
     Active Substance: LEVONORGESTREL
     Dosage: UNK
  2. NEXPLANON [Suspect]
     Active Substance: ETONOGESTREL
     Dosage: 1 ROD
     Route: 059
  3. JADELLE [Suspect]
     Active Substance: LEVONORGESTREL
     Dosage: UNK

REACTIONS (2)
  - Overdose [Unknown]
  - No adverse event [Unknown]
